FAERS Safety Report 14188762 (Version 1)
Quarter: 2017Q4

REPORT INFORMATION
  Report Type: Other
  Country: GB (occurrence: US)
  Receive Date: 20171114
  Receipt Date: 20171114
  Transmission Date: 20180321
  Serious: Yes (Life-Threatening, Other)
  Sender: FDA-Public Use
  Company Number: US-INTERNATIONAL MEDICATION SYSTEMS, LIMITED-2034060

PATIENT
  Age: 55 Year
  Sex: Male
  Weight: 97 kg

DRUGS (34)
  1. LIDOCAINE. [Suspect]
     Active Substance: LIDOCAINE
     Indication: INDUCTION OF ANAESTHESIA
  2. TRAMADOL. [Concomitant]
     Active Substance: TRAMADOL
  3. HYOSCINE [Concomitant]
     Active Substance: SCOPOLAMINE
     Route: 062
  4. PROPOFOL. [Suspect]
     Active Substance: PROPOFOL
     Route: 042
  5. HYOSCINE [Concomitant]
     Active Substance: SCOPOLAMINE
     Route: 062
  6. DULOXETINE. [Concomitant]
     Active Substance: DULOXETINE
  7. PROPOFOL. [Suspect]
     Active Substance: PROPOFOL
  8. HYDROMORPHONE HCL [Concomitant]
     Active Substance: HYDROMORPHONE HYDROCHLORIDE
     Route: 042
  9. DICLOFENAC [Concomitant]
     Active Substance: DICLOFENAC
  10. FENTANYL. [Suspect]
     Active Substance: FENTANYL
  11. SEVOFLURANE. [Concomitant]
     Active Substance: SEVOFLURANE
     Route: 055
  12. OXYGEN. [Concomitant]
     Active Substance: OXYGEN
  13. FAMOTIDINE. [Concomitant]
     Active Substance: FAMOTIDINE
     Route: 042
  14. MIDAZOLAM [Concomitant]
     Active Substance: MIDAZOLAM HYDROCHLORIDE
     Route: 042
  15. DESFLURANE. [Concomitant]
     Active Substance: DESFLURANE
  16. DIPHENHYDRAMINE. [Concomitant]
     Active Substance: DIPHENHYDRAMINE
  17. TRAZODONE [Concomitant]
     Active Substance: TRAZODONE HYDROCHLORIDE
  18. DULOXETINE. [Concomitant]
     Active Substance: DULOXETINE
  19. SUXAMETHONIUM [Suspect]
     Active Substance: SUCCINYLCHOLINE
  20. CLINDAMYCIN. [Concomitant]
     Active Substance: CLINDAMYCIN
     Route: 042
  21. HYDROCHLOROTHIAZIDE 320 MG AND VALSARTAN 25 MG [Suspect]
     Active Substance: HYDROCHLOROTHIAZIDE\VALSARTAN
  22. OXYGEN. [Concomitant]
     Active Substance: OXYGEN
  23. PARACETAMOL [Concomitant]
     Active Substance: ACETAMINOPHEN
     Route: 048
  24. ROCURONIUM [Suspect]
     Active Substance: ROCURONIUM BROMIDE
  25. FENTANYL. [Suspect]
     Active Substance: FENTANYL
  26. LACTATED RINGERS SOLUTION [Concomitant]
     Active Substance: CALCIUM CHLORIDE\POTASSIUM CHLORIDE\SODIUM CHLORIDE\SODIUM LACTATE
     Route: 042
  27. OXYGEN. [Concomitant]
     Active Substance: OXYGEN
     Route: 055
  28. OXYCODONE 10 MG, ACETAMINOPHEN 325 MG [Concomitant]
     Active Substance: ACETAMINOPHEN\OXYCODONE HYDROCHLORIDE
  29. OMEPRAZOLE. [Concomitant]
     Active Substance: OMEPRAZOLE
  30. PROPOFOL. [Suspect]
     Active Substance: PROPOFOL
  31. ASPIRIN. [Concomitant]
     Active Substance: ASPIRIN
  32. TESTOSTERONE. [Suspect]
     Active Substance: TESTOSTERONE
     Route: 062
  33. ONDANSETRON [Concomitant]
     Active Substance: ONDANSETRON
     Route: 042
  34. SILDENAFIL. [Suspect]
     Active Substance: SILDENAFIL

REACTIONS (1)
  - Hypotension [Recovered/Resolved]
